FAERS Safety Report 7256192-2 (Version None)
Quarter: 2011Q1

REPORT INFORMATION
  Report Type: 
  Country: None (occurrence: None)
  Receive Date: 20110129
  Receipt Date: 20100513
  Transmission Date: 20110831
  Serious: No
  Sender: FDA-Public Use
  Company Number: US-ABBOTT-10P-163-0619847-00

PATIENT
  Sex: Female
  Weight: 114.41 kg

DRUGS (14)
  1. HUMIRA [Suspect]
     Indication: ANKYLOSING SPONDYLITIS
     Route: 058
     Dates: start: 20100115, end: 20100215
  2. LORTAB [Concomitant]
     Indication: PAIN
  3. OMEPRAZOLE [Concomitant]
     Indication: GASTROOESOPHAGEAL REFLUX DISEASE
  4. DAYPRO [Concomitant]
     Indication: ANKYLOSING SPONDYLITIS
  5. ELAVIL [Concomitant]
     Indication: PRODUCT USED FOR UNKNOWN INDICATION
  6. MULTI-VITAMIN [Concomitant]
     Indication: PRODUCT USED FOR UNKNOWN INDICATION
  7. IBUPROFEN [Concomitant]
     Indication: ANKYLOSING SPONDYLITIS
  8. TYLENOL-500 [Concomitant]
     Indication: PAIN
  9. NEXIUM [Concomitant]
     Indication: GASTROOESOPHAGEAL REFLUX DISEASE
  10. DEPO-MEDROL [Concomitant]
     Indication: PAIN
     Dates: start: 20090501, end: 20091201
  11. HUMIRA [Suspect]
     Indication: FIBROMYALGIA
     Dates: start: 20100310
  12. VITAMIN D [Concomitant]
     Indication: VITAMIN D DEFICIENCY
  13. IBUPROFEN [Concomitant]
     Indication: PAIN
  14. LORTAB [Concomitant]
     Indication: ANKYLOSING SPONDYLITIS

REACTIONS (10)
  - PAIN [None]
  - WEIGHT INCREASED [None]
  - SELF-MEDICATION [None]
  - HYPOAESTHESIA FACIAL [None]
  - PARAESTHESIA [None]
  - HYPOAESTHESIA [None]
  - NAUSEA [None]
  - DYSPEPSIA [None]
  - DIARRHOEA [None]
  - HYPERSENSITIVITY [None]
